FAERS Safety Report 7647479-X (Version None)
Quarter: 2011Q3

REPORT INFORMATION
  Report Type: 
  Country: None (occurrence: None)
  Receive Date: 20110801
  Receipt Date: 20110712
  Transmission Date: 20111222
  Serious: Yes (Death, Hospitalization)
  Sender: FDA-Public Use
  Company Number: US-GLAXOSMITHKLINE-A0837541A

PATIENT
  Age: 66 Year
  Sex: Male
  Weight: 159.1 kg

DRUGS (6)
  1. ATENOLOL [Concomitant]
  2. INSULIN [Concomitant]
  3. METOLAZONE [Concomitant]
  4. AVANDIA [Suspect]
     Indication: TYPE 2 DIABETES MELLITUS
     Dosage: 8MG PER DAY
     Route: 048
     Dates: start: 20040101, end: 20070425
  5. QUINAPRIL HCL [Concomitant]
  6. METFORMIN HCL [Concomitant]
     Dates: end: 20070401

REACTIONS (2)
  - DEATH [None]
  - CARDIAC FAILURE CONGESTIVE [None]
